FAERS Safety Report 9521333 (Version 3)
Quarter: 2014Q1

REPORT INFORMATION
  Report Type: Report from Study
  Country: JP (occurrence: JP)
  Receive Date: 20130913
  Receipt Date: 20140314
  Transmission Date: 20141002
  Serious: Yes (Hospitalization)
  Sender: FDA-Public Use
  Company Number: JP-JNJFOC-20130905130

PATIENT
  Age: 71 Year
  Sex: Male
  Weight: 70 kg

DRUGS (9)
  1. STELARA [Suspect]
     Indication: PSORIASIS
     Route: 058
     Dates: start: 20131121, end: 20131121
  2. STELARA [Suspect]
     Indication: PSORIASIS
     Route: 058
     Dates: start: 20130828, end: 20130828
  3. STELARA [Suspect]
     Indication: PSORIASIS
     Route: 058
     Dates: start: 20130606, end: 20130606
  4. STELARA [Suspect]
     Indication: PSORIASIS
     Route: 058
     Dates: start: 20130314, end: 20130314
  5. STELARA [Suspect]
     Indication: PSORIASIS
     Route: 058
     Dates: start: 20121220, end: 20121220
  6. STELARA [Suspect]
     Indication: PSORIASIS
     Route: 058
     Dates: start: 20121120, end: 20121120
  7. ALLELOCK [Concomitant]
     Indication: PSORIASIS
     Route: 048
  8. MENTAX [Concomitant]
     Indication: TINEA INFECTION
     Route: 061
  9. MYSER [Concomitant]
     Indication: PSORIASIS
     Route: 061

REACTIONS (1)
  - Pneumonia bacterial [Recovered/Resolved]
